FAERS Safety Report 5165030-3 (Version None)
Quarter: 2006Q4

REPORT INFORMATION
  Report Type: 
  Country: None (occurrence: None)
  Receive Date: 20061124
  Receipt Date: 20061113
  Transmission Date: 20070319
  Serious: Yes (Other)
  Sender: FDA-Public Use
  Company Number: 2006127234

PATIENT
  Age: 27 Year
  Sex: Male
  Weight: 69 kg

DRUGS (2)
  1. LYRICA [Suspect]
     Indication: NEURALGIA
     Dosage: 300 MG (150 MG, 2 IN 1 D), ORAL
     Route: 048
     Dates: start: 20060901, end: 20060925
  2. ACETAMINOPHEN W/ PROPOXYPHENE HCL [Concomitant]

REACTIONS (1)
  - RHABDOMYOLYSIS [None]
